FAERS Safety Report 10224476 (Version 1)
Quarter: 2014Q2

REPORT INFORMATION
  Report Type: Report from Study
  Country: BR (occurrence: BR)
  Receive Date: 20140609
  Receipt Date: 20140609
  Transmission Date: 20141212
  Serious: Yes (Hospitalization, Other)
  Sender: FDA-Public Use
  Company Number: PHHY2014BR067354

PATIENT
  Age: 38 Year
  Sex: Male
  Weight: 100 kg

DRUGS (15)
  1. MYCOPHENOLIC ACID [Suspect]
     Indication: IMMUNOSUPPRESSION
     Dosage: 1440 MG, UNK
  2. MYCOPHENOLIC ACID [Suspect]
     Dosage: 1080 MG/DAY
  3. MYCOPHENOLIC ACID [Suspect]
     Dosage: UNK, (1MONTH OF TRANSPLANT)
  4. MYCOPHENOLIC ACID [Suspect]
     Dosage: UNK , (05 MONTH OF TRANSPLANT)
  5. BASILIXIMAB [Suspect]
     Indication: IMMUNOSUPPRESSION
     Dosage: UNK
  6. TACROLIMUS [Suspect]
     Indication: IMMUNOSUPPRESSION
     Dosage: 15 MG, UNK
  7. TACROLIMUS [Suspect]
     Dosage: UNK UKN, 1MONTH OF TRANSPLANT
  8. TACROLIMUS [Suspect]
     Dosage: UNK UKN, UNK UKN, (5MONTH OF TRANSPLANT)
  9. TACROLIMUS [Suspect]
     Dosage: UNK UKN, 06 MONTH OF TRANSPLANT
  10. TACROLIMUS [Suspect]
     Dosage: 11 MG/DAY
  11. METHYLPREDNISOLONE [Suspect]
     Indication: IMMUNOSUPPRESSION
     Dosage: 500 MG, DAILY
  12. PREDNISONE [Suspect]
     Indication: IMMUNOSUPPRESSION
     Dosage: UNK UKN, UNK
  13. PREDNISONE [Suspect]
     Dosage: UNK (1MONTH OF TRANSPLANT)
  14. DEFLAZACORT [Suspect]
     Dosage: UNK UKN, UNK
  15. DEFLAZACORT [Suspect]
     Dosage: 9 MG/DAY

REACTIONS (5)
  - Complications of transplanted kidney [Unknown]
  - Urinary tract infection [Unknown]
  - Cytomegalovirus infection [Unknown]
  - Proteinuria [Unknown]
  - Blood cholesterol increased [Unknown]
